FAERS Safety Report 4632687-2 (Version None)
Quarter: 2005Q2

REPORT INFORMATION
  Report Type: 
  Country: None (occurrence: None)
  Receive Date: 20050412
  Receipt Date: 20050331
  Transmission Date: 20051028
  Serious: Yes (Other)
  Sender: FDA-Public Use
  Company Number: US-JNJFOC-20050400487

PATIENT
  Sex: Female
  Weight: 89.81 kg

DRUGS (12)
  1. REMICADE [Suspect]
     Indication: RHEUMATOID ARTHRITIS
     Dosage: 5 VIALS
     Route: 042
  2. CELEBREX [Concomitant]
  3. VALIUM [Concomitant]
  4. ZOLOFT [Concomitant]
  5. ACIPHEX [Concomitant]
  6. PERCOCET [Concomitant]
  7. PERCOCET [Concomitant]
  8. PAMELOR [Concomitant]
  9. BENADRYL [Concomitant]
     Indication: PREMEDICATION
  10. TYLENOL (CAPLET) [Concomitant]
     Indication: PREMEDICATION
  11. ZANTAC [Concomitant]
     Indication: PREMEDICATION
  12. ZYRTEC [Concomitant]
     Indication: PREMEDICATION

REACTIONS (4)
  - INFUSION RELATED REACTION [None]
  - NEOPLASM [None]
  - PRURITUS [None]
  - URTICARIA [None]
